FAERS Safety Report 5191747-0 (Version None)
Quarter: 2006Q4

REPORT INFORMATION
  Report Type: 
  Country: None (occurrence: None)
  Receive Date: 20061219
  Receipt Date: 20061206
  Transmission Date: 20070319
  Serious: Yes (Other)
  Sender: FDA-Public Use
  Company Number: B0397585A

PATIENT
  Age: 41 Year
  Sex: Male

DRUGS (7)
  1. AVANDIA [Suspect]
     Indication: DIABETES MELLITUS NON-INSULIN-DEPENDENT
  2. METFORMIN HCL [Suspect]
     Indication: DIABETES MELLITUS NON-INSULIN-DEPENDENT
     Dosage: 500 MG / THREE TIMES PER DAY
  3. LABETALOL HYDROCHLORIDE [Suspect]
     Indication: HYPERTENSION
  4. BECONASE [Suspect]
     Indication: DRUG USE FOR UNKNOWN INDICATION
  5. PERINDOPRIL ERBUMINE [Concomitant]
  6. FOLIDIPINE [Concomitant]
  7. INSULIN [Concomitant]

REACTIONS (6)
  - CAESAREAN SECTION [None]
  - DIABETES MELLITUS INADEQUATE CONTROL [None]
  - DRUG EXPOSURE DURING PREGNANCY [None]
  - PREMATURE RUPTURE OF MEMBRANES [None]
  - TWIN PREGNANCY [None]
  - UNINTENDED PREGNANCY [None]
